FAERS Safety Report 24199604 (Version 1)
Quarter: 2024Q3

REPORT INFORMATION
  Report Type: Spontaneous
  Country: US (occurrence: US)
  Receive Date: 20240812
  Receipt Date: 20240812
  Transmission Date: 20241016
  Serious: No
  Sender: Haleon PLC
  Company Number: US-HALEON-2191261

PATIENT

DRUGS (1)
  1. NICODERM CQ [Suspect]
     Active Substance: NICOTINE
     Indication: Product used for unknown indication
     Dosage: STRENGTH: 21 MG

REACTIONS (3)
  - Drug ineffective [Unknown]
  - Product use complaint [Unknown]
  - Product adhesion issue [Unknown]
